FAERS Safety Report 6970158-9 (Version None)
Quarter: 2010Q3

REPORT INFORMATION
  Report Type: 
  Country: None (occurrence: None)
  Receive Date: 20100903
  Receipt Date: 20100824
  Transmission Date: 20110219
  Serious: Yes (Hospitalization)
  Sender: FDA-Public Use
  Company Number: 679641

PATIENT
  Age: 12 Year
  Sex: Male

DRUGS (10)
  1. CYTARABINE [Suspect]
     Indication: ACUTE LYMPHOCYTIC LEUKAEMIA
     Dosage: 4 G/M^2,
  2. METHOTREXATE [Suspect]
     Indication: ACUTE LYMPHOCYTIC LEUKAEMIA
     Dosage: 1 G/M^2; INTRAVENOUS DRIP
     Route: 041
  3. DEXAMETHASONE [Concomitant]
  4. MERCAPTOPURINE [Concomitant]
  5. VINCRISTINE SULFATE [Concomitant]
  6. ELSPAR [Concomitant]
  7. THIOGUANINE [Concomitant]
  8. DAUNORUBICIN HCL [Concomitant]
  9. IFOSFAMIDE [Concomitant]
  10. TRIMETHOPRIM + SULFAMETHOXAZOLE [Concomitant]

REACTIONS (10)
  - CELLULITIS [None]
  - DERMATITIS BULLOUS [None]
  - HAEMOGLOBIN DECREASED [None]
  - NEUTROPENIA [None]
  - PALMAR-PLANTAR ERYTHRODYSAESTHESIA SYNDROME [None]
  - PLATELET COUNT DECREASED [None]
  - RASH ERYTHEMATOUS [None]
  - RASH PRURITIC [None]
  - SKIN EXFOLIATION [None]
  - WHITE BLOOD CELL COUNT DECREASED [None]
